FAERS Safety Report 5501264-3 (Version None)
Quarter: 2007Q4

REPORT INFORMATION
  Report Type: 
  Country: None (occurrence: None)
  Receive Date: 20071029
  Receipt Date: 20071023
  Transmission Date: 20080405
  Serious: Yes (Disabling)
  Sender: FDA-Public Use
  Company Number: US-MERCK-0709USA00693

PATIENT
  Age: 71 Year
  Sex: Female
  Weight: 93 kg

DRUGS (28)
  1. ZETIA [Suspect]
     Indication: BLOOD CHOLESTEROL INCREASED
     Route: 048
     Dates: start: 20061001, end: 20070901
  2. PROTONIX [Concomitant]
     Indication: GASTROOESOPHAGEAL REFLUX DISEASE
     Route: 048
  3. DICYCLOMINE HYDROCHLORIDE [Concomitant]
     Indication: ABDOMINAL PAIN
     Route: 048
  4. NITROGLYCERIN [Concomitant]
     Indication: CHEST PAIN
     Route: 048
  5. EFFEXOR XR [Concomitant]
     Indication: DEPRESSION
     Route: 048
  6. XANAX [Concomitant]
     Indication: ANXIETY
     Route: 048
  7. LORTAB [Concomitant]
     Indication: PAIN
     Route: 048
  8. VITAMINS (UNSPECIFIED) [Concomitant]
     Route: 048
  9. METRONIDAZOLE [Concomitant]
     Indication: ROSACEA
     Route: 061
  10. DIMETHYL SULFONE [Concomitant]
     Route: 048
  11. FLAXSEED [Concomitant]
     Indication: BLOOD CHOLESTEROL INCREASED
     Route: 048
  12. ZONALON [Concomitant]
     Indication: FIBROMYALGIA
     Route: 061
  13. ADVAIR DISKUS 100/50 [Concomitant]
     Indication: ASTHMA
     Route: 065
  14. MINOCYCLINE [Concomitant]
     Indication: ROSACEA
     Route: 048
  15. PREMARIN [Concomitant]
     Route: 048
  16. ATENOLOL [Concomitant]
     Indication: CARDIAC DISORDER
     Route: 048
     Dates: start: 20051001
  17. DILTIAZEM HYDROCHLORIDE [Concomitant]
     Indication: CARDIAC DISORDER
     Route: 048
     Dates: start: 20051001
  18. FUROSEMIDE [Concomitant]
     Indication: OEDEMA
     Route: 048
  19. CYANOCOBALAMIN [Concomitant]
     Route: 048
  20. NIZORAL [Concomitant]
     Indication: FUNGAL INFECTION
     Route: 061
     Dates: start: 20060909
  21. NIZORAL 2% SHAMPOO [Concomitant]
     Indication: FUNGAL INFECTION
     Route: 061
     Dates: start: 20060909
  22. BETAMETHASONE [Concomitant]
     Indication: FUNGAL INFECTION
     Route: 061
     Dates: start: 20060909
  23. PLAQUENIL [Concomitant]
     Indication: SYNOVITIS
     Route: 048
  24. HUMIRA [Concomitant]
     Indication: ARTHRITIS
     Route: 051
  25. ISONIAZID [Concomitant]
     Indication: TUBERCULOSIS SKIN TEST POSITIVE
     Route: 048
     Dates: end: 20071004
  26. NITROGLYCERIN [Concomitant]
     Indication: CARDIAC DISORDER
     Route: 065
  27. VALTREX [Concomitant]
     Indication: HERPES VIRUS INFECTION
     Route: 048
  28. REQUIP [Concomitant]
     Route: 048
     Dates: start: 20070302

REACTIONS (5)
  - GAIT DISTURBANCE [None]
  - MUSCULAR WEAKNESS [None]
  - MYALGIA [None]
  - PAIN [None]
  - PAIN IN EXTREMITY [None]
